FAERS Safety Report 7952954-4 (Version None)
Quarter: 2011Q4

REPORT INFORMATION
  Report Type: 
  Country: None (occurrence: None)
  Receive Date: 20111201
  Receipt Date: 20111123
  Transmission Date: 20120403
  Serious: Yes (Other)
  Sender: FDA-Public Use
  Company Number: AU-JNJFOC-20111008226

PATIENT
  Sex: Female
  Weight: 55 kg

DRUGS (3)
  1. STELARA [Suspect]
     Indication: PSORIASIS
     Route: 058
     Dates: start: 20110820
  2. STELARA [Suspect]
     Route: 058
     Dates: start: 20110917
  3. STELARA [Suspect]
     Route: 058
     Dates: start: 20110720

REACTIONS (2)
  - ARTHRITIS [None]
  - INAPPROPRIATE SCHEDULE OF DRUG ADMINISTRATION [None]
